FAERS Safety Report 4917900-6 (Version None)
Quarter: 2006Q1

REPORT INFORMATION
  Report Type: 
  Country: None (occurrence: None)
  Receive Date: 20060215
  Receipt Date: 20060203
  Transmission Date: 20060701
  Serious: Yes (Hospitalization)
  Sender: FDA-Public Use
  Company Number: 2006018145

PATIENT
  Sex: 0

DRUGS (1)
  1. AMLODIPINE [Suspect]
     Indication: ILL-DEFINED DISORDER

REACTIONS (1)
  - DRUG TOXICITY [None]
